FAERS Safety Report 10844218 (Version 1)
Quarter: 2015Q1

REPORT INFORMATION
  Report Type: Spontaneous
  Country: US (occurrence: US)
  Receive Date: 20150220
  Receipt Date: 20150220
  Transmission Date: 20150721
  Serious: No
  Sender: FDA-Public Use
  Company Number: US-009507513-1502USA008613

PATIENT
  Sex: Female

DRUGS (2)
  1. LOTRIMIN ULTRA [Suspect]
     Active Substance: BUTENAFINE HYDROCHLORIDE
     Indication: ONYCHOMYCOSIS
  2. LOTRIMIN ULTRA [Suspect]
     Active Substance: BUTENAFINE HYDROCHLORIDE
     Indication: TINEA PEDIS
     Dosage: UNK, UNKNOWN
     Route: 061

REACTIONS (3)
  - Product quality issue [Unknown]
  - Drug prescribing error [Unknown]
  - Drug administered at inappropriate site [Unknown]
